FAERS Safety Report 6829747-4 (Version None)
Quarter: 2010Q3

REPORT INFORMATION
  Report Type: 
  Country: None (occurrence: None)
  Receive Date: 20100709
  Receipt Date: 20080126
  Transmission Date: 20110219
  Serious: No
  Sender: FDA-Public Use
  Company Number: US-PFIZER INC-2007010802

PATIENT
  Sex: Male
  Weight: 78.5 kg

DRUGS (5)
  1. CHANTIX [Suspect]
     Indication: SMOKING CESSATION THERAPY
     Route: 048
     Dates: start: 20070128
  2. CHANTIX [Suspect]
     Dates: start: 20071101
  3. TRIAMTERENE AND HYDROCHLOROTHIAZIDE [Concomitant]
  4. LISINOPRIL [Concomitant]
  5. ACETYLSALICYLIC ACID [Concomitant]

REACTIONS (5)
  - ABNORMAL DREAMS [None]
  - BLOOD POTASSIUM INCREASED [None]
  - CHEST DISCOMFORT [None]
  - FLATULENCE [None]
  - SLEEP DISORDER [None]
